FAERS Safety Report 12637239 (Version 2)
Quarter: 2017Q1

REPORT INFORMATION
  Report Type: Report from Study
  Country: JP (occurrence: JP)
  Receive Date: 20160809
  Receipt Date: 20170309
  Transmission Date: 20170428
  Serious: Yes (Hospitalization)
  Sender: FDA-Public Use
  Company Number: JP-ACTELION-A-CH2016-140395

PATIENT
  Age: 73 Year
  Sex: Female

DRUGS (13)
  1. BENZBROMARONE [Concomitant]
     Active Substance: BENZBROMARONE
  2. IMIDAPRIL HYDROCHLORIDE [Concomitant]
     Active Substance: IMIDAPRIL HYDROCHLORIDE
  3. TRICHLORMETHIAZIDE [Concomitant]
     Active Substance: TRICHLORMETHIAZIDE
  4. CLOPIDOGREL SULFATE [Concomitant]
     Active Substance: CLOPIDOGREL BISULFATE
  5. FEBUXOSTAT. [Concomitant]
     Active Substance: FEBUXOSTAT
  6. FAMOTIDINE. [Concomitant]
     Active Substance: FAMOTIDINE
  7. RIVAROXABAN [Concomitant]
     Active Substance: RIVAROXABAN
  8. BISOPROLOL FUMARATE. [Concomitant]
     Active Substance: BISOPROLOL FUMARATE
  9. ROSUVASTATIN. [Concomitant]
     Active Substance: ROSUVASTATIN
  10. MIGLITOL. [Concomitant]
     Active Substance: MIGLITOL
  11. FERROUS CITRATE [Concomitant]
     Active Substance: FERROUS CITRATE
  12. METILDIGOXIN [Concomitant]
     Active Substance: METILDIGOXIN
  13. OPSUMIT [Suspect]
     Active Substance: MACITENTAN
     Indication: PULMONARY ARTERIAL HYPERTENSION
     Dosage: 10 MG, OD
     Route: 048
     Dates: start: 20160118

REACTIONS (6)
  - Weight increased [Recovered/Resolved]
  - White blood cell count decreased [Recovered/Resolved]
  - Platelet count decreased [Recovered/Resolved]
  - Cardiac failure [Recovering/Resolving]
  - Haemoglobin decreased [Recovered/Resolved]
  - Pancytopenia [Recovered/Resolved]

NARRATIVE: CASE EVENT DATE: 20160204
